FAERS Safety Report 6504708-3 (Version None)
Quarter: 2009Q4

REPORT INFORMATION
  Report Type: 
  Country: None (occurrence: None)
  Receive Date: 20091218
  Receipt Date: 20091111
  Transmission Date: 20100525
  Serious: No
  Sender: FDA-Public Use
  Company Number: A0813388A

PATIENT
  Age: 16 Year
  Sex: Male

DRUGS (3)
  1. PROMACTA [Suspect]
     Indication: IDIOPATHIC THROMBOCYTOPENIC PURPURA
     Dosage: 75MG PER DAY
     Route: 048
     Dates: start: 20090401
  2. TAMIFLU [Concomitant]
     Dosage: 70MG PER DAY
     Route: 048
  3. DEXAMETHASONE TAB [Concomitant]
     Indication: IDIOPATHIC THROMBOCYTOPENIC PURPURA
     Dosage: 40MG PER DAY
     Route: 048
     Dates: start: 20091026, end: 20091029

REACTIONS (3)
  - H1N1 INFLUENZA [None]
  - PETECHIAE [None]
  - PLATELET COUNT DECREASED [None]
